FAERS Safety Report 8119687-5 (Version None)
Quarter: 2012Q1

REPORT INFORMATION
  Report Type: 
  Country: None (occurrence: None)
  Receive Date: 20120207
  Receipt Date: 20120203
  Transmission Date: 20120608
  Serious: Yes (Death, Hospitalization)
  Sender: FDA-Public Use
  Company Number: US-MERCK-1107USA01644

PATIENT
  Age: 84 Year
  Sex: Female

DRUGS (1)
  1. FOSAMAX [Suspect]
     Indication: BONE DENSITY DECREASED
     Route: 048
     Dates: start: 20010701

REACTIONS (7)
  - COLON CANCER [None]
  - PNEUMONIA ASPIRATION [None]
  - BLOOD COUNT ABNORMAL [None]
  - FEMUR FRACTURE [None]
  - MYOCARDIAL INFARCTION [None]
  - LOW TURNOVER OSTEOPATHY [None]
  - FALL [None]
